FAERS Safety Report 25879567 (Version 2)
Quarter: 2025Q4

REPORT INFORMATION
  Report Type: Report from Study
  Country: US (occurrence: US)
  Receive Date: 20251003
  Receipt Date: 20251008
  Transmission Date: 20260118
  Serious: Yes (Other)
  Sender: APELLIS PHARMACEUTICALS
  Company Number: US-APELLIS-2025-APL-0001864

PATIENT

DRUGS (3)
  1. SYFOVRE [Suspect]
     Active Substance: PEGCETACOPLAN
     Indication: Dry age-related macular degeneration
     Dosage: EVERY 28 DAYS BILATERAL
     Route: 031
     Dates: start: 20230926
  2. SYFOVRE [Suspect]
     Active Substance: PEGCETACOPLAN
     Dosage: LEFT EYE, AROUND EVERY SIX WEEKS
     Route: 031
     Dates: start: 20230823
  3. SYFOVRE [Suspect]
     Active Substance: PEGCETACOPLAN
     Dosage: RIGHT EYE, AROUND EVERY SIX WEEKS
     Route: 031
     Dates: start: 20240507

REACTIONS (6)
  - Optic disc oedema [Unknown]
  - Vitreous floaters [Unknown]
  - Vitreal cells [Unknown]
  - Inappropriate schedule of product administration [Unknown]
  - Eye infection [Unknown]
  - Eye inflammation [Unknown]
